FAERS Safety Report 9458789 (Version 1)
Quarter: 2013Q3

REPORT INFORMATION
  Report Type: Spontaneous
  Country: US (occurrence: None)
  Receive Date: 20130812
  Receipt Date: 20130812
  Transmission Date: 20140515
  Serious: Yes (Other)
  Sender: FDA-Public Use
  Company Number: 001577477A

PATIENT
  Age: 61 Day
  Sex: Female

DRUGS (1)
  1. PROACTIV RENEWING CLEANSER [Suspect]
     Indication: ACNE
     Dosage: ONCE DERMAL
     Dates: start: 20130701

REACTIONS (3)
  - Swelling face [None]
  - Eye swelling [None]
  - Throat tightness [None]
